FAERS Safety Report 7497504-4 (Version None)
Quarter: 2011Q2

REPORT INFORMATION
  Report Type: 
  Country: None (occurrence: None)
  Receive Date: 20110523
  Receipt Date: 20110510
  Transmission Date: 20111010
  Serious: Yes (Hospitalization)
  Sender: FDA-Public Use
  Company Number: US-UCBSA-031031

PATIENT
  Sex: Female

DRUGS (2)
  1. CIMZIA [Suspect]
     Indication: CROHN'S DISEASE
     Route: 058
     Dates: start: 20100701
  2. IMURAN [Concomitant]

REACTIONS (5)
  - SKIN DISCOLOURATION [None]
  - NECK PAIN [None]
  - CHOLELITHIASIS [None]
  - SYSTEMIC LUPUS ERYTHEMATOSUS [None]
  - FISTULA [None]
